FAERS Safety Report 13316806 (Version 1)
Quarter: 2017Q1

REPORT INFORMATION
  Report Type: Spontaneous
  Country: TW (occurrence: TW)
  Receive Date: 20170308
  Receipt Date: 20170308
  Transmission Date: 20170428
  Serious: Yes (Death, Hospitalization)
  Sender: FDA-Public Use
  Company Number: TW-AMGEN-TWNSP2017035250

PATIENT
  Age: 80 Year
  Sex: Male

DRUGS (3)
  1. ARHEUMA [Concomitant]
     Dosage: 20 MG, QD
     Route: 048
  2. PLAQUENIL [Concomitant]
     Active Substance: HYDROXYCHLOROQUINE SULFATE
     Dosage: 200 MG, BID
     Route: 048
  3. ENBREL [Suspect]
     Active Substance: ETANERCEPT
     Indication: RHEUMATOID ARTHRITIS
     Dosage: 25 MG, BIW
     Route: 058
     Dates: start: 201408, end: 20170202

REACTIONS (3)
  - Haemoptysis [Not Recovered/Not Resolved]
  - Respiratory failure [Fatal]
  - Dyspnoea [Not Recovered/Not Resolved]
